FAERS Safety Report 9149290 (Version 1)
Quarter: 2013Q1

REPORT INFORMATION
  Report Type: Spontaneous
  Country: FR (occurrence: None)
  Receive Date: 20130131
  Receipt Date: 20130131
  Transmission Date: 20140127
  Serious: Yes (Hospitalization)
  Sender: FDA-Public Use
  Company Number: 220227

PATIENT
  Age: 82 Year
  Sex: Female

DRUGS (6)
  1. INNOHEP (TINZAPARIN SODIUM) [Suspect]
     Dosage: 0.6 ML, SUBCUTANEOUS
     Route: 058
     Dates: end: 20121015
  2. PARIET (RABEPRAZOLE SODIUM) [Concomitant]
  3. CORTANCYL (PREDNISONE) [Concomitant]
  4. ALPRAZOLAM (ALPRAZOLAM) [Concomitant]
  5. DIFFU K (POTASSIUM CHLORIDE) [Concomitant]
  6. LASILIX (FUROSEMIDE) [Concomitant]

REACTIONS (6)
  - Haematoma [None]
  - Tachycardia [None]
  - Rib fracture [None]
  - Spinal cord compression [None]
  - Bone disorder [None]
  - Systemic inflammatory response syndrome [None]
